FAERS Safety Report 19337275 (Version 2)
Quarter: 2021Q3

REPORT INFORMATION
  Report Type: Spontaneous
  Country: US (occurrence: US)
  Receive Date: 20210530
  Receipt Date: 20210722
  Transmission Date: 20211014
  Serious: No
  Sender: FDA-Public Use
  Company Number: US-JNJFOC-20210544992

PATIENT
  Age: 65 Year
  Sex: Female

DRUGS (1)
  1. WOMENS ROGAINE UNSCENTED [Suspect]
     Active Substance: MINOXIDIL
     Indication: ALOPECIA
     Dosage: HALF A CUPFUL
     Route: 061
     Dates: start: 20190827

REACTIONS (4)
  - Application site erythema [Unknown]
  - Alopecia [Not Recovered/Not Resolved]
  - Application site pain [Unknown]
  - Application site irritation [Unknown]

NARRATIVE: CASE EVENT DATE: 202104
